FAERS Safety Report 4738165-4 (Version None)
Quarter: 2005Q3

REPORT INFORMATION
  Report Type: 
  Country: None (occurrence: None)
  Receive Date: 20050804
  Receipt Date: 20050722
  Transmission Date: 20060218
  Serious: Yes (Death)
  Sender: FDA-Public Use
  Company Number: 2005S1006673

PATIENT
  Age: 71 Year
  Sex: Female

DRUGS (11)
  1. CLOZAPINE [Suspect]
     Indication: PARKINSON'S DISEASE
     Dosage: 12.5 MG; HS; PO
     Route: 048
     Dates: start: 20020101, end: 20050701
  2. CLOZAPINE [Suspect]
     Indication: PSYCHOTIC DISORDER
     Dosage: 12.5 MG; HS; PO
     Route: 048
     Dates: start: 20020101, end: 20050701
  3. BOTOX (ALLERGAN) [Suspect]
     Indication: NERVOUS SYSTEM DISORDER
     Dosage: IM
     Route: 030
  4. FLUOXETINE [Concomitant]
  5. HYDROCHLORIDE [Concomitant]
  6. CARBIDOPA AND LEVODOPA [Concomitant]
  7. TRAMADOL HCL [Concomitant]
  8. MORPHINE [Concomitant]
  9. PANTOPRAZOLE [Concomitant]
  10. ESTROGEN NOS [Concomitant]
  11. OXYCODONE [Concomitant]

REACTIONS (2)
  - OVERDOSE [None]
  - RESPIRATORY ARREST [None]
